FAERS Safety Report 16916388 (Version 1)
Quarter: 2019Q4

REPORT INFORMATION
  Report Type: Report from Study
  Country: US (occurrence: US)
  Receive Date: 20191014
  Receipt Date: 20191014
  Transmission Date: 20200122
  Serious: Yes (Death)
  Sender: FDA-Public Use
  Company Number: US-ACTELION-A-US2019-194064

PATIENT
  Age: 59 Year
  Sex: Female
  Weight: 58.96 kg

DRUGS (2)
  1. REVATIO [Concomitant]
     Active Substance: SILDENAFIL CITRATE
  2. VENTAVIS [Suspect]
     Active Substance: ILOPROST
     Indication: PULMONARY HYPERTENSION
     Dosage: 5 MCG INHALED 6 TO 9 TIMES PER DAY
     Route: 055

REACTIONS (8)
  - Fatigue [Unknown]
  - Death [Fatal]
  - Dizziness [Unknown]
  - Muscle spasms [Unknown]
  - Cough [Unknown]
  - Unevaluable event [Unknown]
  - Dysphonia [Unknown]
  - Heart rate increased [Recovered/Resolved]

NARRATIVE: CASE EVENT DATE: 20191001
